FAERS Safety Report 20981522 (Version 2)
Quarter: 2022Q3

REPORT INFORMATION
  Report Type: Spontaneous
  Country: US (occurrence: US)
  Receive Date: 20220620
  Receipt Date: 20220719
  Transmission Date: 20221026
  Serious: No
  Sender: FDA-Public Use
  Company Number: US-AIMMUNE THERAPEUTICS, INC.-2022AIMT00480

PATIENT

DRUGS (3)
  1. PALFORZIA [Suspect]
     Active Substance: PEANUT
     Indication: Food allergy
     Dosage: 0.5-6MG, ONCE, IDE, LAST DOSE PRIOR EVENT OF MEDICATION WAS OUTSIDE OF THE REFRIGERATOR
     Route: 048
     Dates: start: 20220606, end: 20220606
  2. PALFORZIA [Suspect]
     Active Substance: PEANUT
     Dosage: 3 MG, 1X/DAY
     Route: 048
     Dates: start: 20220607, end: 20220614
  3. PALFORZIA [Suspect]
     Active Substance: PEANUT
     Dosage: 3 MG, 1X/DAY, DOSE RESTARTED
     Route: 048
     Dates: start: 20220616, end: 20220620

REACTIONS (4)
  - Product storage error [Recovered/Resolved]
  - Pruritus [Recovered/Resolved]
  - Urticaria [Recovered/Resolved]
  - Oral pruritus [Recovered/Resolved]

NARRATIVE: CASE EVENT DATE: 20220601
